FAERS Safety Report 8988798 (Version 1)
Quarter: 2012Q4

REPORT INFORMATION
  Report Type: 
  Country: FI (occurrence: FI)
  Receive Date: 20121228
  Receipt Date: 20121228
  Transmission Date: 20130627
  Serious: Yes (Hospitalization)
  Sender: FDA-Public Use
  Company Number: FI-BAYER-2012-135396

PATIENT
  Age: 38 Year
  Sex: Female

DRUGS (1)
  1. QLAIRA [Suspect]
     Indication: CONTRACEPTION
     Dosage: UNK
     Dates: end: 20121106

REACTIONS (4)
  - Pulmonary embolism [Not Recovered/Not Resolved]
  - Dyspnoea [None]
  - Focal nodular hyperplasia [None]
  - Hepatic adenoma [None]
